FAERS Safety Report 9178392 (Version 1)
Quarter: 2012Q4

REPORT INFORMATION
  Report Type: 
  Country: US (occurrence: US)
  Receive Date: 20121029
  Receipt Date: 20121029
  Transmission Date: 20130627
  Serious: No
  Sender: FDA-Public Use
  Company Number: US-PFIZER INC-2012267868

PATIENT
  Sex: Female

DRUGS (4)
  1. LIPITOR [Suspect]
     Dosage: UNK
  2. DILANTIN [Suspect]
     Dosage: UNK
  3. ACCUPRIL [Suspect]
     Dosage: UNK
  4. ACCURETIC [Suspect]
     Dosage: UNK

REACTIONS (1)
  - Pain in extremity [Unknown]
